FAERS Safety Report 17581349 (Version 1)
Quarter: 2020Q1

REPORT INFORMATION
  Report Type: Spontaneous
  Country: US (occurrence: US)
  Receive Date: 20200325
  Receipt Date: 20200325
  Transmission Date: 20200409
  Serious: No
  Sender: FDA-Public Use
  Company Number: None

PATIENT
  Age: 73 Year
  Sex: Female
  Weight: 60.75 kg

DRUGS (10)
  1. AMBIEN [Concomitant]
     Active Substance: ZOLPIDEM TARTRATE
  2. CLONAZEPAM 0.5MG [Concomitant]
     Active Substance: CLONAZEPAM
  3. ESCITALOPRAM 10MG [Concomitant]
     Active Substance: ESCITALOPRAM OXALATE
  4. AMITRIPTYLLINE 150MG [Concomitant]
  5. FETZIMA 120MG [Concomitant]
  6. LEVOTHYROXINE 100MG [Concomitant]
     Active Substance: LEVOTHYROXINE
  7. WARFARIN 7.5MG [Concomitant]
     Active Substance: WARFARIN
  8. LETROZOLE 2.5MG [Concomitant]
     Active Substance: LETROZOLE
  9. EVEROLIMUS. [Suspect]
     Active Substance: EVEROLIMUS
     Indication: BREAST CANCER FEMALE
     Route: 048
     Dates: start: 20200303
  10. GABAPENTIN 100MG [Concomitant]
     Active Substance: GABAPENTIN

REACTIONS (1)
  - Gingival pain [None]

NARRATIVE: CASE EVENT DATE: 20200325
